FAERS Safety Report 10004616 (Version 2)
Quarter: 2014Q1

REPORT INFORMATION
  Report Type: Spontaneous
  Country: US (occurrence: US)
  Receive Date: 20140312
  Receipt Date: 20140312
  Transmission Date: 20141002
  Serious: Yes (Other)
  Sender: FDA-Public Use
  Company Number: US-TEVA-397119USA

PATIENT
  Age: 27 Year
  Sex: Female
  Weight: 105.33 kg

DRUGS (1)
  1. PLAN B [Suspect]
     Indication: POST COITAL CONTRACEPTION
     Dosage: 1.5 MILLIGRAM DAILY;
     Route: 048
     Dates: start: 20130326, end: 20130327

REACTIONS (3)
  - Pregnancy [Unknown]
  - Expired drug administered [Unknown]
  - Off label use [Unknown]
